FAERS Safety Report 17864781 (Version 1)
Quarter: 2020Q2

REPORT INFORMATION
  Report Type: Spontaneous
  Country: CA (occurrence: CA)
  Receive Date: 20200605
  Receipt Date: 20200605
  Transmission Date: 20200714
  Serious: Yes (Hospitalization)
  Sender: FDA-Public Use
  Company Number: CA-MYLANLABS-2020M1054435

PATIENT
  Age: 47 Year
  Sex: Female

DRUGS (1)
  1. OXALIPLATIN. [Suspect]
     Active Substance: OXALIPLATIN
     Indication: RECTAL CANCER METASTATIC
     Dosage: UNK
     Route: 065

REACTIONS (5)
  - Zoonotic bacterial infection [Unknown]
  - Dyspnoea [Unknown]
  - Staphylococcal infection [Unknown]
  - Aphonia [Unknown]
  - Choking sensation [Unknown]

NARRATIVE: CASE EVENT DATE: 2018
